FAERS Safety Report 7639653-3 (Version None)
Quarter: 2011Q3

REPORT INFORMATION
  Report Type: 
  Country: None (occurrence: None)
  Receive Date: 20110727
  Receipt Date: 20110726
  Transmission Date: 20111222
  Serious: Yes (Hospitalization)
  Sender: FDA-Public Use
  Company Number: US-PFIZER INC-2010038502

PATIENT
  Sex: Male
  Weight: 78.458 kg

DRUGS (7)
  1. METOPROLOL [Concomitant]
  2. AMLODIPINE AND ATORVASTATIN [Suspect]
     Dosage: UNK
     Route: 048
     Dates: start: 20080725
  3. PLAVIX [Concomitant]
  4. ACETYLSALICYLIC ACID [Concomitant]
  5. ATACAND [Suspect]
     Indication: HYPERTENSION
     Dosage: 32 MG, 1X/DAY
     Route: 048
     Dates: start: 20080725
  6. DOXAZOSIN [Concomitant]
  7. PALMAZ GENESIS [Suspect]

REACTIONS (1)
  - LOSS OF CONSCIOUSNESS [None]
